FAERS Safety Report 23230118 (Version 1)
Quarter: 2023Q4

REPORT INFORMATION
  Report Type: Spontaneous
  Country: US (occurrence: None)
  Receive Date: 20231124
  Receipt Date: 20231124
  Transmission Date: 20240110
  Serious: Yes (Other)
  Sender: FDA-Public Use
  Company Number: None

PATIENT
  Age: 75 Year
  Sex: Female

DRUGS (6)
  1. AMBRISENTAN [Suspect]
     Active Substance: AMBRISENTAN
     Indication: Pulmonary hypertension
     Dosage: FREQUENCY : DAILY;?
     Route: 048
     Dates: start: 20230915
  2. SILDENAFIL [Concomitant]
  3. FUROSEMIDE [Concomitant]
  4. FOSAMAX [Concomitant]
  5. AMLODIPINE [Concomitant]
     Active Substance: AMLODIPINE BESYLATE
  6. PANTOPRAZOLE [Concomitant]

REACTIONS (4)
  - Oedema peripheral [None]
  - Cough [None]
  - Dyspnoea [None]
  - Pulmonary hypertension [None]

NARRATIVE: CASE EVENT DATE: 20231103
